FAERS Safety Report 5579973-X (Version None)
Quarter: 2007Q4

REPORT INFORMATION
  Report Type: 
  Country: None (occurrence: None)
  Receive Date: 20071226
  Receipt Date: 20071211
  Transmission Date: 20080405
  Serious: Yes (Other)
  Sender: FDA-Public Use
  Company Number: B0500020A

PATIENT
  Age: 31 Year
  Sex: Male

DRUGS (4)
  1. LAMIVUDINE (FORMULATION) (GENERIC) (LAMIVUDINE) [Suspect]
     Indication: HIV INFECTION
     Dates: start: 20010101
  2. ZIDOVUDINE [Suspect]
     Indication: HIV INFECTION
     Dates: start: 20010101
  3. EFAVIRENZ [Suspect]
     Indication: HIV INFECTION
     Dates: start: 20010101
  4. VALACYCLOVIR [Suspect]
     Indication: GENITAL HERPES
     Dosage: TWICE PER DAY

REACTIONS (7)
  - BETA HAEMOLYTIC STREPTOCOCCAL INFECTION [None]
  - CULTURE POSITIVE [None]
  - DISEASE RECURRENCE [None]
  - GENITAL HERPES [None]
  - IMMUNE RECONSTITUTION SYNDROME [None]
  - PENILE NEOPLASM [None]
  - TREATMENT FAILURE [None]
